FAERS Safety Report 6764358-0 (Version None)
Quarter: 2010Q2

REPORT INFORMATION
  Report Type: 
  Country: None (occurrence: None)
  Receive Date: 20100610
  Receipt Date: 20100531
  Transmission Date: 20101027
  Serious: Yes (Death)
  Sender: FDA-Public Use
  Company Number: JP-PFIZER INC-2010065466

PATIENT
  Age: 57 Year
  Sex: Female
  Weight: 56 kg

DRUGS (8)
  1. SILDENAFIL CITRATE [Suspect]
     Indication: PULMONARY ARTERIAL HYPERTENSION
     Dosage: 20 MG, 2X/DAY
     Route: 048
     Dates: start: 20080716
  2. GENTAMICIN [Concomitant]
  3. BERAPROST SODIUM [Concomitant]
     Indication: PULMONARY ARTERIAL HYPERTENSION
     Dosage: UNK
     Route: 048
     Dates: start: 20090217
  4. LIPITOR [Concomitant]
  5. CLARITH [Concomitant]
  6. GASMOTIN [Concomitant]
  7. TAKEPRON [Concomitant]
  8. FERROMIA [Concomitant]
     Indication: IRON DEFICIENCY ANAEMIA

REACTIONS (1)
  - DEATH [None]
